FAERS Safety Report 4791194-7 (Version None)
Quarter: 2005Q4

REPORT INFORMATION
  Report Type: 
  Country: None (occurrence: None)
  Receive Date: 20051007
  Receipt Date: 20050519
  Transmission Date: 20060501
  Serious: Yes (Hospitalization)
  Sender: FDA-Public Use
  Company Number: GBWYE681019MAY05

PATIENT
  Sex: Female
  Weight: 73 kg

DRUGS (14)
  1. ENBREL [Suspect]
     Indication: RHEUMATOID ARTHRITIS
     Route: 058
     Dates: start: 20040509, end: 20040715
  2. INSULIN ASPART [Concomitant]
     Dosage: UNKNOWN
     Route: 056
  3. DEXTROPROPOXYPHENE HYDROCHLORIDE/PARACETAMOL [Concomitant]
     Dosage: UNKNOWN
     Route: 056
  4. ATENOLOL [Concomitant]
     Dosage: UNKNOWN
     Route: 056
  5. QUININE SULFATE [Concomitant]
     Dosage: UNKNOWN
     Route: 056
  6. ATORVASTATIN [Concomitant]
     Dosage: UNKNOWN
     Route: 056
  7. ASPIRIN [Concomitant]
     Dosage: UNKNOWN
     Route: 056
  8. LANSOPRAZOLE [Concomitant]
     Dosage: UNKNOWN
     Route: 056
  9. FUROSEMIDE [Concomitant]
     Dosage: UNKNOWN
     Route: 056
  10. LACTULOSE [Concomitant]
     Dosage: UNKNOWN
     Route: 056
  11. RAMIPRIL [Concomitant]
     Dosage: UNKNOWN
     Route: 056
  12. ZOPICLONE [Concomitant]
  13. CHLORPHENIRAMINE MALEATE [Concomitant]
     Dosage: UNKNOWN
     Route: 056
  14. TRAMADOL [Concomitant]
     Dosage: UNKNOWN
     Route: 056

REACTIONS (4)
  - BODY TEMPERATURE INCREASED [None]
  - CHOLECYSTECTOMY [None]
  - HYPERGLYCAEMIA [None]
  - VOMITING [None]
